FAERS Safety Report 15007172 (Version 2)
Quarter: 2018Q3

REPORT INFORMATION
  Report Type: Spontaneous
  Country: US (occurrence: US)
  Receive Date: 20180613
  Receipt Date: 20180711
  Transmission Date: 20181010
  Serious: Yes (Other)
  Sender: FDA-Public Use
  Company Number: US-BEH-2018091574

PATIENT
  Age: 10 Year
  Sex: Female

DRUGS (1)
  1. HIZENTRA [Suspect]
     Active Substance: HUMAN IMMUNOGLOBULIN G
     Indication: PRODUCT USED FOR UNKNOWN INDICATION
     Dosage: UNK
     Route: 065
     Dates: start: 201312, end: 201806

REACTIONS (3)
  - Injection site vesicles [Recovering/Resolving]
  - Injection site vesicles [Recovering/Resolving]
  - Injection site ulcer [Recovering/Resolving]

NARRATIVE: CASE EVENT DATE: 20180605
